FAERS Safety Report 16545293 (Version 1)
Quarter: 2019Q3

REPORT INFORMATION
  Report Type: Spontaneous
  Country: US (occurrence: US)
  Receive Date: 20190708
  Receipt Date: 20190708
  Transmission Date: 20191004
  Serious: No
  Sender: FDA-Public Use
  Company Number: None

PATIENT
  Age: 67 Year
  Sex: Female
  Weight: 119.25 kg

DRUGS (4)
  1. METFORMIN [Concomitant]
     Active Substance: METFORMIN HYDROCHLORIDE
  2. OLMESARTAN MEDOXOMIL 5MG [Suspect]
     Active Substance: OLMESARTAN MEDOXOMIL
     Indication: BLOOD PRESSURE MEASUREMENT
     Dosage: ?          QUANTITY:1 TABLET(S);?
     Route: 048
     Dates: start: 20190702, end: 20190707
  3. FLONASE [Concomitant]
     Active Substance: FLUTICASONE PROPIONATE
  4. ZYRTEC [Concomitant]
     Active Substance: CETIRIZINE HYDROCHLORIDE

REACTIONS (10)
  - Nausea [None]
  - Product substitution issue [None]
  - Cough [None]
  - Headache [None]
  - Diarrhoea [None]
  - Chest discomfort [None]
  - Abdominal pain upper [None]
  - Dizziness [None]
  - Upper respiratory tract congestion [None]
  - Confusional state [None]

NARRATIVE: CASE EVENT DATE: 20190708
